FAERS Safety Report 8719025 (Version 2)
Quarter: 2012Q4

REPORT INFORMATION
  Report Type: 
  Country: CA (occurrence: CA)
  Receive Date: 20120813
  Receipt Date: 20121213
  Transmission Date: 20130627
  Serious: Yes (Hospitalization, Disabling, Other)
  Sender: FDA-Public Use
  Company Number: CA-AMGEN-CANSP2012049555

PATIENT
  Age: 75 Year
  Sex: Female
  Weight: 56 kg

DRUGS (34)
  1. ENBREL [Suspect]
     Indication: PRODUCT USED FOR UNKNOWN INDICATION
     Dosage: 50 mug, qwk
     Route: 058
  2. METHOTREXATE [Suspect]
     Dosage: 20 mg, qwk
     Route: 048
  3. CALCIUM [Concomitant]
     Dosage: UNK
  4. CYCLOBENZAPRINE [Concomitant]
     Dosage: UNK
  5. DILTIAZEM [Concomitant]
     Dosage: UNK
  6. INDAPAMIDE [Concomitant]
     Dosage: UNK
  7. LANSOPRAZOLE [Concomitant]
     Dosage: UNK
  8. LORAZEPAM [Concomitant]
     Dosage: UNK
  9. PREDNISONE [Concomitant]
     Dosage: UNK
  10. RISEDRONATE SODIUM [Concomitant]
     Dosage: UNK
  11. SYMBICORT TU [Concomitant]
     Dosage: UNK
  12. ACETAMINOPHEN [Concomitant]
     Dosage: UNK
  13. ACTONEL [Concomitant]
     Dosage: UNK
  14. ARTIFICIAL TEARS                   /00445101/ [Concomitant]
     Dosage: UNK
  15. ATIVAN [Concomitant]
     Dosage: UNK
  16. ATROVENT [Concomitant]
     Dosage: UNK
  17. BRICANYL TURBUHALER [Concomitant]
     Dosage: UNK
  18. CARBOCAL D [Concomitant]
     Dosage: UNK
  19. DOCUSATE SODIUM [Concomitant]
  20. EVISTA [Concomitant]
     Dosage: 60 mg, UNK
  21. FERROUS SULPHATE                   /00023503/ [Concomitant]
     Dosage: UNK
  22. FLOVENT [Concomitant]
     Dosage: UNK
  23. LOZIDE                             /00340101/ [Concomitant]
     Dosage: UNK
  24. NICODERM [Concomitant]
     Dosage: UNK
  25. OXYGEN [Concomitant]
     Dosage: UNK
  26. PLAQUENIL                          /00072602/ [Concomitant]
  27. PRAVACHOL [Concomitant]
     Dosage: UNK
  28. PREVACID [Concomitant]
     Dosage: UNK
  29. PRO-TRIAZIDE [Concomitant]
     Dosage: UNK
  30. LACRI-LUBE [Concomitant]
     Dosage: UNK
  31. SPIRIVA [Concomitant]
     Dosage: UNK
  32. TIAZAC                             /00489702/ [Concomitant]
     Dosage: UNK
  33. VENTOLIN                           /00139501/ [Concomitant]
     Dosage: UNK
  34. VITAMIN D /00107901/ [Concomitant]
     Dosage: UNK

REACTIONS (6)
  - Diplegia [Recovering/Resolving]
  - Neurological eyelid disorder [Not Recovered/Not Resolved]
  - Tongue paralysis [Not Recovered/Not Resolved]
  - Paraesthesia [Not Recovered/Not Resolved]
  - Hypoxia [Unknown]
  - Hypomagnesaemia [Unknown]
